FAERS Safety Report 7861828-9 (Version None)
Quarter: 2011Q4

REPORT INFORMATION
  Report Type: 
  Country: None (occurrence: None)
  Receive Date: 20111027
  Receipt Date: 20101117
  Transmission Date: 20120403
  Serious: No
  Sender: FDA-Public Use
  Company Number: US-AMGEN-USASP2010005348

PATIENT
  Age: 52 Year
  Sex: Male
  Weight: 104.31 kg

DRUGS (11)
  1. CARAFATE [Concomitant]
     Dosage: 1 MG, UNK
  2. ENBREL [Suspect]
     Indication: PRODUCT USED FOR UNKNOWN INDICATION
     Dosage: 50 MG, QWK
     Route: 058
  3. AVALIDE [Concomitant]
     Dosage: 12.5 MG, UNK
  4. LOVASTATIN [Concomitant]
     Dosage: 10 MG, UNK
  5. FOLIC ACID [Concomitant]
     Dosage: 1 MG, UNK
  6. DEXLANSOPRAZOLE [Concomitant]
     Dosage: 30 MG, UNK
  7. METHOTREXATE [Concomitant]
     Dosage: 25 MG, UNK
  8. PREDNISONE [Concomitant]
     Dosage: 1 MG, UNK
  9. SULFASALAZINE [Concomitant]
     Dosage: 500 MG, UNK
  10. MULTI-VITAMINS [Concomitant]
  11. MOBIC [Concomitant]
     Dosage: 7.5 MG, UNK

REACTIONS (1)
  - URTICARIA [None]
